FAERS Safety Report 5229094-0 (Version None)
Quarter: 2007Q1

REPORT INFORMATION
  Report Type: 
  Country: None (occurrence: None)
  Receive Date: 20070205
  Receipt Date: 20070131
  Transmission Date: 20070707
  Serious: Yes (Hospitalization)
  Sender: FDA-Public Use
  Company Number: TH-SHR-TH-2007-003124

PATIENT
  Sex: Female

DRUGS (1)
  1. ULTRAVIST 370 [Suspect]
     Dosage: 50 ML, 1 DOSE
     Route: 042
     Dates: start: 20070131, end: 20070131

REACTIONS (4)
  - BLISTER [None]
  - EYE SWELLING [None]
  - PRURITUS [None]
  - RASH [None]
